FAERS Safety Report 6230688-4 (Version None)
Quarter: 2009Q2

REPORT INFORMATION
  Report Type: 
  Country: None (occurrence: None)
  Receive Date: 20090616
  Receipt Date: 20070511
  Transmission Date: 20091009
  Serious: Yes (Hospitalization, Other)
  Sender: FDA-Public Use
  Company Number: US-ASTRAZENECA-2006UW21464

PATIENT
  Age: 20082 Day
  Sex: Male
  Weight: 97.5 kg

DRUGS (24)
  1. SEROQUEL [Suspect]
     Indication: DEPRESSION
     Dosage: 50 MG-75 MG DAILY
     Route: 048
     Dates: start: 20051027
  2. SEROQUEL [Suspect]
     Indication: SCHIZOPHRENIA
     Dosage: 50 MG-75 MG DAILY
     Route: 048
     Dates: start: 20051027
  3. SEROQUEL [Suspect]
     Indication: INSOMNIA
     Dosage: 50 MG-75 MG DAILY
     Route: 048
     Dates: start: 20051027
  4. SEROQUEL [Suspect]
     Route: 048
     Dates: start: 20051101
  5. SEROQUEL [Suspect]
     Route: 048
     Dates: start: 20051101
  6. SEROQUEL [Suspect]
     Route: 048
     Dates: start: 20051101
  7. REMERON [Concomitant]
     Dosage: 15-30 MG DAILY
     Route: 048
     Dates: start: 20051027
  8. REMERON [Concomitant]
  9. DECADRON [Concomitant]
     Dates: start: 20050908
  10. DEPO-MEDROL [Concomitant]
     Route: 030
     Dates: start: 20051202
  11. DIOVAN [Concomitant]
     Route: 048
     Dates: start: 20051026
  12. CELEBREX [Concomitant]
     Dosage: 100-200 MG DAILY
     Route: 048
     Dates: start: 20001024
  13. NEURONTIN [Concomitant]
     Route: 048
     Dates: start: 20060423
  14. TOPROL-XL [Concomitant]
     Route: 048
     Dates: start: 20051026
  15. VISTARIL [Concomitant]
     Indication: INSOMNIA
     Route: 048
     Dates: start: 20051026
  16. EFFEXOR XR [Concomitant]
     Dosage: 37.5-150 MG DAILY
     Route: 048
     Dates: start: 20051029
  17. MOBIC [Concomitant]
     Route: 048
     Dates: start: 20051029
  18. ASPIRIN [Concomitant]
     Route: 048
     Dates: start: 20070716
  19. PLAVIX [Concomitant]
     Route: 048
     Dates: start: 20070716
  20. VASOTEC [Concomitant]
     Route: 048
     Dates: start: 20070716
  21. CRESTOR [Concomitant]
     Route: 048
     Dates: start: 20070716
  22. PROTONIX [Concomitant]
     Route: 048
     Dates: start: 20051104
  23. TYLENOL (CAPLET) [Concomitant]
     Route: 048
     Dates: start: 20051026
  24. LOPERAMIDE HCL [Concomitant]
     Route: 048
     Dates: start: 20051026

REACTIONS (3)
  - DIABETES MELLITUS [None]
  - NEUROPATHY PERIPHERAL [None]
  - TYPE 1 DIABETES MELLITUS [None]
